FAERS Safety Report 16633403 (Version 1)
Quarter: 2019Q3

REPORT INFORMATION
  Report Type: Spontaneous
  Country: US (occurrence: US)
  Receive Date: 20190613
  Receipt Date: 20190613
  Transmission Date: 20191004
  Serious: No
  Sender: FDA-Public Use
  Company Number: None

PATIENT

DRUGS (1)
  1. DIAZEPAM. [Suspect]
     Active Substance: DIAZEPAM
     Dosage: ?          OTHER DOSE:SINGLE-DOSE SYRING;?

REACTIONS (2)
  - Product packaging confusion [None]
  - Physical product label issue [None]
